FAERS Safety Report 11460332 (Version 1)
Quarter: 2015Q3

REPORT INFORMATION
  Report Type: Spontaneous
  Country: US (occurrence: US)
  Receive Date: 20150904
  Receipt Date: 20150904
  Transmission Date: 20151125
  Serious: Yes (Hospitalization)
  Sender: FDA-Public Use
  Company Number: US-ACTELION-A-US2015-123456

PATIENT
  Age: 9 Year
  Sex: Male

DRUGS (1)
  1. ZAVESCA [Suspect]
     Active Substance: MIGLUSTAT
     Indication: TYPE V HYPERLIPIDAEMIA
     Dosage: 200 MG, BID
     Route: 048
     Dates: start: 20141217

REACTIONS (1)
  - Osteomyelitis [Unknown]
